FAERS Safety Report 8185282-5 (Version None)
Quarter: 2012Q1

REPORT INFORMATION
  Report Type: 
  Country: None (occurrence: None)
  Receive Date: 20120305
  Receipt Date: 20120224
  Transmission Date: 20120608
  Serious: Yes (Hospitalization)
  Sender: FDA-Public Use
  Company Number: PHHY2012FR016005

PATIENT
  Sex: Female

DRUGS (5)
  1. TRILEPTAL [Suspect]
     Dosage: 3 DF, DAILY
     Route: 048
  2. TRILEPTAL [Suspect]
     Indication: EPILEPSY
     Dosage: 5 DF, DAILY
     Route: 048
     Dates: start: 20120106
  3. TRILEPTAL [Suspect]
     Dosage: 4 DF, DAILY
     Route: 048
     Dates: start: 20120124
  4. TRILEPTAL [Suspect]
     Dosage: 2 DF, DAILY
     Route: 048
  5. TRILEPTAL [Suspect]
     Dosage: 1 DF, DAILY
     Route: 048

REACTIONS (4)
  - BLOOD ALKALINE PHOSPHATASE INCREASED [None]
  - GAMMA-GLUTAMYLTRANSFERASE INCREASED [None]
  - CHOLESTASIS [None]
  - HYPONATRAEMIA [None]
